FAERS Safety Report 17756734 (Version 1)
Quarter: 2020Q2

REPORT INFORMATION
  Report Type: Report from Study
  Country: IT (occurrence: IT)
  Receive Date: 20200507
  Receipt Date: 20200507
  Transmission Date: 20200714
  Serious: Yes (Hospitalization)
  Sender: FDA-Public Use
  Company Number: IT-PFIZER INC-2020181668

PATIENT
  Age: 57 Year
  Sex: Female

DRUGS (4)
  1. NOZINAN [LEVOMEPROMAZINE] [Suspect]
     Active Substance: LEVOMEPROMAZINE
     Dosage: 200 MG TOTAL
     Route: 048
     Dates: start: 20191016, end: 20191016
  2. TALOFEN [Suspect]
     Active Substance: PROMAZINE HYDROCHLORIDE
     Dosage: 40 DROP TOTAL
     Route: 048
     Dates: start: 20191016, end: 20191016
  3. TAVOR (LORAZEPAM) [Suspect]
     Active Substance: LORAZEPAM
     Dosage: 2 MG TOTAL
     Route: 048
     Dates: start: 20191016, end: 20191016
  4. FELISON [Suspect]
     Active Substance: FLURAZEPAM MONOHYDROCHLORIDE
     Dosage: 30 MG TOTAL
     Route: 048
     Dates: start: 20191016, end: 20191016

REACTIONS (3)
  - Sopor [Recovering/Resolving]
  - Hypotension [Recovering/Resolving]
  - Drug abuse [Recovering/Resolving]

NARRATIVE: CASE EVENT DATE: 20191016
